FAERS Safety Report 19955659 (Version 1)
Quarter: 2021Q4

REPORT INFORMATION
  Report Type: Spontaneous
  Country: US (occurrence: US)
  Receive Date: 20211013
  Receipt Date: 20211013
  Transmission Date: 20220303
  Serious: Yes (Hospitalization)
  Sender: FDA-Public Use
  Company Number: US-SUPERNUS PHARMACEUTICALS, INC.-SUP202110-002023

PATIENT
  Age: 28 Year
  Sex: Male

DRUGS (21)
  1. OXCARBAZEPINE [Suspect]
     Active Substance: OXCARBAZEPINE
     Indication: Product used for unknown indication
  2. ALOGLIPTIN [Concomitant]
     Active Substance: ALOGLIPTIN
     Dosage: NOT PROVIDED
  3. ATORVASTATIN [Concomitant]
     Active Substance: ATORVASTATIN
     Dosage: NOT PROVIDED
  4. BENZTROPINE [Concomitant]
     Active Substance: BENZTROPINE
     Dosage: NOT PROVIDED
  5. DIVALPROEX SODIUM [Concomitant]
     Active Substance: DIVALPROEX SODIUM
     Dosage: NOT PROVIDED
  6. GABAPENTIN [Concomitant]
     Active Substance: GABAPENTIN
     Dosage: NOT PROVIDED
  7. GLIPIZIDE [Concomitant]
     Active Substance: GLIPIZIDE
     Dosage: NOT PROVIDED
  8. IBUPROFEN [Concomitant]
     Active Substance: IBUPROFEN
     Dosage: NOT PROVIDED
  9. INSULIN ASPART [Concomitant]
     Active Substance: INSULIN ASPART
     Dosage: NOT PROVIDED
  10. INSULIN GLARGINE [Concomitant]
     Active Substance: INSULIN GLARGINE
     Dosage: NOT PROVIDED
  11. LISINOPRIL [Concomitant]
     Active Substance: LISINOPRIL
     Dosage: NOT PROVIDED
  12. MIRABEGRON [Concomitant]
     Active Substance: MIRABEGRON
     Dosage: NOT PROVIDED
  13. METFORMIN [Concomitant]
     Active Substance: METFORMIN HYDROCHLORIDE
     Dosage: NOT PROVIDED
  14. METOPROLOL [Concomitant]
     Active Substance: METOPROLOL
     Dosage: NOT PROVIDED
  15. ONDANSETRON [Concomitant]
     Active Substance: ONDANSETRON
     Dosage: NOT PROVIDED
  16. PALIPERIDONE [Concomitant]
     Active Substance: PALIPERIDONE
     Dosage: NOT PROVIDED
  17. PANTOPRAZOLE [Concomitant]
     Active Substance: PANTOPRAZOLE
     Dosage: NOT PROVIDED
  18. SERTRALINE [Concomitant]
     Active Substance: SERTRALINE HYDROCHLORIDE
     Dosage: NOT PROVIDED
  19. TOLTERODINE [Concomitant]
     Active Substance: TOLTERODINE
     Dosage: NOT PROVIDED
  20. TOPIRAMATE [Concomitant]
     Active Substance: TOPIRAMATE
     Dosage: NOT PROVIDED
  21. RIVAROXABAN [Interacting]
     Active Substance: RIVAROXABAN
     Indication: Anticoagulant therapy

REACTIONS (3)
  - Pulmonary embolism [Recovering/Resolving]
  - Anticoagulation drug level decreased [Unknown]
  - Drug interaction [Unknown]
